FAERS Safety Report 9193229 (Version 2)
Quarter: 2013Q2

REPORT INFORMATION
  Report Type: Spontaneous
  Country: US (occurrence: US)
  Receive Date: 20130327
  Receipt Date: 20130426
  Transmission Date: 20140414
  Serious: No
  Sender: FDA-Public Use
  Company Number: US-PFIZER INC-2013098372

PATIENT
  Age: 10 Year
  Sex: Male

DRUGS (3)
  1. SERTRALINE HCL [Suspect]
     Indication: ANXIETY
     Dosage: 6.25 MG, UNK
     Route: 048
     Dates: start: 201303
  2. SERTRALINE HCL [Suspect]
     Dosage: 12.5 MG (0.65 ML) ONCE EVERY DAY FOR 7 DAYS
     Route: 048
  3. SERTRALINE HCL [Suspect]
     Dosage: 25 MG (1.25 ML), 1X/DAY (MIX WITH 4OZ OF WATER, GINGERALE, LEMON/LIME SODA LEMONADE)
     Route: 048

REACTIONS (5)
  - Glossodynia [Unknown]
  - Tongue haemorrhage [Unknown]
  - Dysgeusia [Unknown]
  - Insomnia [Unknown]
  - Wrong technique in drug usage process [Unknown]
